FAERS Safety Report 14795508 (Version 2)
Quarter: 2019Q2

REPORT INFORMATION
  Report Type: Spontaneous
  Country: US (occurrence: US)
  Receive Date: 20180423
  Receipt Date: 20190614
  Transmission Date: 20190711
  Serious: Yes (Other)
  Sender: FDA-Public Use
  Company Number: US-ASTRAZENECA-2018SE53527

PATIENT
  Age: 19879 Day
  Sex: Male
  Weight: 127 kg

DRUGS (36)
  1. PRILOSEC OTC [Suspect]
     Active Substance: OMEPRAZOLE MAGNESIUM
     Route: 048
  2. DEXILANT [Suspect]
     Active Substance: DEXLANSOPRAZOLE
     Route: 048
  3. ZOFRAN [Concomitant]
     Active Substance: ONDANSETRON HYDROCHLORIDE
  4. POLYETHYLENE GLYCOL [Concomitant]
     Active Substance: POLYETHYLENE GLYCOLS
  5. NEXIUM [Suspect]
     Active Substance: ESOMEPRAZOLE MAGNESIUM
     Dosage: GENERIC
     Route: 065
     Dates: start: 20101029, end: 201012
  6. OXYCODONE HYDROCHLORIDE. [Concomitant]
     Active Substance: OXYCODONE HYDROCHLORIDE
  7. ATORVASTATIN [Concomitant]
     Active Substance: ATORVASTATIN
  8. KETOCONAZOLE. [Concomitant]
     Active Substance: KETOCONAZOLE
  9. LINZESS [Concomitant]
     Active Substance: LINACLOTIDE
  10. NEXIUM 24HR [Suspect]
     Active Substance: ESOMEPRAZOLE MAGNESIUM
     Route: 048
  11. SYMBICORT [Concomitant]
     Active Substance: BUDESONIDE\FORMOTEROL FUMARATE DIHYDRATE
  12. METFORMIN HYDROCHLORIDE. [Concomitant]
     Active Substance: METFORMIN HYDROCHLORIDE
  13. ZANTAC [Concomitant]
     Active Substance: RANITIDINE HYDROCHLORIDE
  14. NEXIUM [Suspect]
     Active Substance: ESOMEPRAZOLE MAGNESIUM
     Route: 048
     Dates: start: 2015, end: 2019
  15. PREVACID [Suspect]
     Active Substance: LANSOPRAZOLE
     Route: 065
  16. PROTONIX [Suspect]
     Active Substance: PANTOPRAZOLE SODIUM
     Route: 048
     Dates: start: 20181107, end: 20181207
  17. NEXIUM [Suspect]
     Active Substance: ESOMEPRAZOLE MAGNESIUM
     Route: 048
     Dates: start: 20180423
  18. PROTONIX [Suspect]
     Active Substance: PANTOPRAZOLE SODIUM
     Route: 048
     Dates: start: 2015, end: 2019
  19. SINGULAIR [Concomitant]
     Active Substance: MONTELUKAST SODIUM
  20. GABAPENTIN. [Concomitant]
     Active Substance: GABAPENTIN
  21. TUMS [Concomitant]
     Active Substance: CALCIUM CARBONATE
  22. LISINOPRIL. [Concomitant]
     Active Substance: LISINOPRIL
  23. ALPRAZOLAM. [Concomitant]
     Active Substance: ALPRAZOLAM
  24. LISINOPRIL. [Concomitant]
     Active Substance: LISINOPRIL
  25. FUROSEMIDE. [Concomitant]
     Active Substance: FUROSEMIDE
  26. ACIPHEX [Suspect]
     Active Substance: RABEPRAZOLE SODIUM
     Route: 048
  27. VICTOZA [Concomitant]
     Active Substance: LIRAGLUTIDE
  28. LASIX [Concomitant]
     Active Substance: FUROSEMIDE
  29. LACTULOSE. [Concomitant]
     Active Substance: LACTULOSE
  30. NEXIUM [Suspect]
     Active Substance: ESOMEPRAZOLE MAGNESIUM
     Route: 048
  31. PRILOSEC [Suspect]
     Active Substance: OMEPRAZOLE MAGNESIUM
     Route: 048
  32. PREVACID 24 HR [Suspect]
     Active Substance: LANSOPRAZOLE
     Route: 065
  33. METFORMIN [Concomitant]
     Active Substance: METFORMIN HYDROCHLORIDE
  34. NORVASC [Concomitant]
     Active Substance: AMLODIPINE BESYLATE
  35. TAMSULOSIN [Concomitant]
     Active Substance: TAMSULOSIN
  36. LIPITOR [Concomitant]
     Active Substance: ATORVASTATIN CALCIUM

REACTIONS (4)
  - End stage renal disease [Unknown]
  - Acute kidney injury [Unknown]
  - Tubulointerstitial nephritis [Unknown]
  - Chronic kidney disease [Not Recovered/Not Resolved]

NARRATIVE: CASE EVENT DATE: 20150128
